FAERS Safety Report 6439594-3 (Version None)
Quarter: 2009Q4

REPORT INFORMATION
  Report Type: 
  Country: None (occurrence: None)
  Receive Date: 20091113
  Receipt Date: 20091105
  Transmission Date: 20100525
  Serious: Yes (Other)
  Sender: FDA-Public Use
  Company Number: B0602022A

PATIENT
  Sex: Male

DRUGS (3)
  1. ZOVIRAX [Suspect]
     Dosage: 800MG PER DAY
     Route: 042
     Dates: start: 20091015, end: 20091017
  2. ROCEPHIN [Concomitant]
     Route: 065
  3. FLAGYL [Concomitant]
     Route: 065

REACTIONS (3)
  - OFF LABEL USE [None]
  - RENAL FAILURE [None]
  - VOMITING [None]
